FAERS Safety Report 22142060 (Version 1)
Quarter: 2023Q1

REPORT INFORMATION
  Report Type: Spontaneous
  Country: FR (occurrence: FR)
  Receive Date: 20230327
  Receipt Date: 20230327
  Transmission Date: 20230417
  Serious: Yes (Hospitalization)
  Sender: FDA-Public Use
  Company Number: FR-AstraZeneca-2022-55368

PATIENT
  Age: 49 Year
  Sex: Female
  Weight: 5 kg

DRUGS (47)
  1. DOCETAXEL [Suspect]
     Active Substance: DOCETAXEL
     Indication: Oesophageal carcinoma
     Dosage: 50 MG/M2 ON DAYS 1 AND 15 50 MG/M2 ON DAYS 1 AND 15 EVERY FOUR WEEKS
     Route: 042
     Dates: start: 20220414, end: 20220414
  2. DOCETAXEL [Suspect]
     Active Substance: DOCETAXEL
     Indication: Gastric cancer
     Dosage: 50 MG/M2 ON DAYS 1 AND 15 50 MG/M2 ON DAYS 1 AND 15 EVERY FOUR WEEKS
     Route: 042
     Dates: start: 20220428, end: 20220428
  3. DOCETAXEL [Suspect]
     Active Substance: DOCETAXEL
     Dosage: 40.0 MG/M2 ON DAYS 1 AND 15 50 MG/M2 ON DAYS 1 AND 15 EVERY FOUR WEEKS
     Route: 042
     Dates: start: 20220519, end: 20220519
  4. DOCETAXEL [Suspect]
     Active Substance: DOCETAXEL
     Dosage: 40.0 MG/M2 ON DAYS 1 AND 15 50 MG/M2 ON DAYS 1 AND 15 EVERY FOUR WEEKS
     Route: 042
     Dates: start: 20220602, end: 20220602
  5. OXALIPLATIN [Suspect]
     Active Substance: OXALIPLATIN
     Indication: Oesophageal carcinoma
     Dosage: 85 MG/M2 ON DAYS 1 AND 15 85 MG/M2 ON DAYS 1 AND 15 EVERY FOUR WEEKS
     Route: 042
     Dates: start: 20220414, end: 20220414
  6. OXALIPLATIN [Suspect]
     Active Substance: OXALIPLATIN
     Indication: Gastric cancer
     Dosage: 85 MG/M2 ON DAYS 1 AND 15 85 MG/M2 ON DAYS 1 AND 15 EVERY FOUR WEEKS
     Route: 042
     Dates: start: 20220428, end: 20220428
  7. OXALIPLATIN [Suspect]
     Active Substance: OXALIPLATIN
     Dosage: 65 MG/M2 ON DAYS 1 AND 15 85 MG/M2 ON DAYS 1 AND 15 EVERY FOUR WEEKS
     Route: 042
     Dates: start: 20220519, end: 20220519
  8. OXALIPLATIN [Suspect]
     Active Substance: OXALIPLATIN
     Dosage: 65 MG/M2 ON DAYS 1 AND 15 85 MG/M2 ON DAYS 1 AND 15 EVERY FOUR WEEKS
     Route: 042
     Dates: start: 20220602, end: 20220602
  9. OXALIPLATIN [Suspect]
     Active Substance: OXALIPLATIN
     Dosage: 60 MG/M2 ON DAYS 1 AND 15 85 MG/M2 ON DAYS 1 AND 15 EVERY FOUR WEEKS
     Route: 042
     Dates: start: 20220928, end: 20220928
  10. OXALIPLATIN [Suspect]
     Active Substance: OXALIPLATIN
     Dosage: 60.0 MG/M2 ON DAYS 1 AND 15  EVERY FOUR WEEKS
     Route: 042
     Dates: start: 20221012, end: 20221012
  11. OXALIPLATIN [Suspect]
     Active Substance: OXALIPLATIN
     Dosage: 60 MG/M2 ON DAYS 1 EVERY FOUR WEEKS
     Route: 042
     Dates: start: 20221026, end: 20221026
  12. OXALIPLATIN [Suspect]
     Active Substance: OXALIPLATIN
     Dosage: 60.0 MG/M2 ON DAYS 1 AND 15  EVERY FOUR WEEKS
     Route: 042
     Dates: start: 20221109, end: 20221109
  13. FLUOROURACIL [Suspect]
     Active Substance: FLUOROURACIL
     Indication: Gastric cancer
     Dosage: 2600.0 MG/M2 2600 MG/M2 ON DAYS 1 AND 15 2600 MG/M2 ON DAYS 1 AND 15 EVERY FOUR WEEKS
     Route: 042
     Dates: start: 20220414, end: 20220415
  14. FLUOROURACIL [Suspect]
     Active Substance: FLUOROURACIL
     Indication: Oesophageal carcinoma
     Dosage: 2600.0 MG/M2 2600 MG/M2 ON DAYS 1 AND 15 2600 MG/M2 ON DAYS 1 AND 15 EVERY FOUR WEEKS
     Route: 042
     Dates: start: 20220428, end: 20220429
  15. FLUOROURACIL [Suspect]
     Active Substance: FLUOROURACIL
     Dosage: 2600.0 MG/M2 2600 MG/M2 ON DAYS 1 AND 15 2600 MG/M2 ON DAYS 1 AND 15 EVERY FOUR WEEKS
     Route: 042
     Dates: start: 20220519, end: 20220519
  16. FLUOROURACIL [Suspect]
     Active Substance: FLUOROURACIL
     Dosage: 2080.0 MG/M2 2600 MG/M2 ON DAYS 1 AND 15 2600 MG/M2 ON DAYS 1 AND 15 EVERY FOUR WEEKS
     Dates: start: 20220602, end: 20220603
  17. FLUOROURACIL [Suspect]
     Active Substance: FLUOROURACIL
     Dosage: 1300.0 MG/M2 2600 MG/M2 ON DAYS 1 AND 15 2600 MG/M2 ON DAYS 1 AND 15 EVERY FOUR WEEKS
     Dates: start: 20220928, end: 20220929
  18. FLUOROURACIL [Suspect]
     Active Substance: FLUOROURACIL
     Dosage: 1300.0 MG/M2 2600 MG/M2 ON DAYS 1 AND 15 2600 MG/M2 ON DAYS 1 AND 15 EVERY FOUR WEEKS
     Dates: start: 20221012, end: 20221013
  19. FLUOROURACIL [Suspect]
     Active Substance: FLUOROURACIL
     Dosage: 1300.0 MG/M2 2600 MG/M2 ON DAYS 1 AND 15 2600 MG/M2 ON DAYS 1 AND 15 EVERY FOUR WEEKS
     Dates: start: 20221026, end: 20221027
  20. FLUOROURACIL [Suspect]
     Active Substance: FLUOROURACIL
     Dosage: 1300.0 MG/M2 2600 MG/M2 ON DAYS 1 AND 15 2600 MG/M2 ON DAYS 1 AND 15 EVERY FOUR WEEKS
     Dates: start: 20221109, end: 20221110
  21. DURVALUMAB [Suspect]
     Active Substance: DURVALUMAB
     Indication: Gastric cancer
     Dosage: 1500 MG, SINGLE
     Route: 042
     Dates: start: 20220414, end: 20220414
  22. DURVALUMAB [Suspect]
     Active Substance: DURVALUMAB
     Indication: Oesophageal carcinoma
     Dosage: 1500 MG, SINGLE
     Route: 042
     Dates: start: 20220519, end: 20220519
  23. DURVALUMAB [Suspect]
     Active Substance: DURVALUMAB
     Dosage: 1500 MG, SINGLE
     Route: 042
     Dates: start: 20220928, end: 20220928
  24. DURVALUMAB [Suspect]
     Active Substance: DURVALUMAB
     Dosage: 1500 MG, SINGLE
     Route: 042
     Dates: start: 20221026, end: 20221026
  25. DURVALUMAB [Suspect]
     Active Substance: DURVALUMAB
     Dosage: 1500 MG, SINGLE
     Route: 042
     Dates: start: 20221123, end: 20221123
  26. DURVALUMAB [Suspect]
     Active Substance: DURVALUMAB
     Dosage: 1500 MG, SINGLE
     Route: 042
     Dates: start: 20221221, end: 20221221
  27. PREDNISOLONE [Concomitant]
     Active Substance: PREDNISOLONE
     Indication: Prophylaxis of nausea and vomiting
     Dosage: 80 MG, SINGLE
     Route: 048
     Dates: start: 20220414, end: 20220414
  28. PREDNISOLONE [Concomitant]
     Active Substance: PREDNISOLONE
     Dosage: 60 MG, 1X/DAY
     Route: 048
     Dates: start: 20220415, end: 20220416
  29. PREDNISOLONE [Concomitant]
     Active Substance: PREDNISOLONE
     Dosage: 80 MG, SINGLE
     Route: 048
     Dates: start: 20220428, end: 20220428
  30. EMEND [Concomitant]
     Active Substance: APREPITANT
     Indication: Prophylaxis of nausea and vomiting
     Dosage: 125 MG, SINGLE
     Route: 048
     Dates: start: 20220414, end: 20220414
  31. OMEPRAZOLE [Concomitant]
     Active Substance: OMEPRAZOLE
     Indication: Gastrooesophageal reflux disease
     Dosage: 20 MG, 1X/DAY
     Route: 048
  32. LEUCOVORIN [Concomitant]
     Active Substance: LEUCOVORIN
     Indication: Oesophageal carcinoma
     Dosage: 200 MG/M2 ON DAYS 1 AND 15 EVERY FOUR WEEKS
     Route: 042
     Dates: start: 20220414, end: 20220414
  33. LEUCOVORIN [Concomitant]
     Active Substance: LEUCOVORIN
     Indication: Gastric cancer
     Dosage: 200 MG/M2 ON DAYS 1 AND 15 EVERY FOUR WEEKS
     Route: 042
     Dates: start: 20220428, end: 20220428
  34. LEUCOVORIN [Concomitant]
     Active Substance: LEUCOVORIN
     Dosage: 200 MG/M2 ON DAYS 1 AND 15 EVERY FOUR WEEKS
     Route: 042
     Dates: start: 20220519, end: 20220519
  35. LEUCOVORIN [Concomitant]
     Active Substance: LEUCOVORIN
     Dosage: 200 MG/M2 ON DAYS 1 AND 15 EVERY FOUR WEEKS
     Route: 042
     Dates: start: 20220602, end: 20220602
  36. LEUCOVORIN [Concomitant]
     Active Substance: LEUCOVORIN
     Dosage: 100 MG/M2 ON DAYS 1 AND 15 EVERY FOUR WEEKS
     Route: 042
     Dates: start: 20220928, end: 20220928
  37. LEUCOVORIN [Concomitant]
     Active Substance: LEUCOVORIN
     Dosage: 100 MG/M2 ON DAYS 1 AND 15 EVERY FOUR WEEKS
     Route: 042
     Dates: start: 20221012, end: 20221012
  38. LEUCOVORIN [Concomitant]
     Active Substance: LEUCOVORIN
     Dosage: 100 MG/M2 ON DAYS 1 AND 15 EVERY FOUR WEEKS
     Route: 042
     Dates: start: 20221026, end: 20221026
  39. LEUCOVORIN [Concomitant]
     Active Substance: LEUCOVORIN
     Dosage: 100 MG/M2 ON DAYS 1 AND 15 EVERY FOUR WEEKS
     Route: 042
     Dates: start: 20221109, end: 20221109
  40. ONDANSETRON [Concomitant]
     Active Substance: ONDANSETRON
     Indication: Prophylaxis of nausea and vomiting
     Dosage: 8 MG, SINGLE
     Route: 048
     Dates: start: 20220414, end: 20220414
  41. ONDANSETRON [Concomitant]
     Active Substance: ONDANSETRON
     Dosage: 8 MG, SINGLE
     Route: 048
     Dates: start: 20220428, end: 20220428
  42. PRIMPERAN [Concomitant]
     Active Substance: METOCLOPRAMIDE HYDROCHLORIDE
     Indication: Vomiting
     Dosage: 10 MG FREQUENCY 8 HOURS
     Route: 048
     Dates: start: 202204, end: 202204
  43. LOPERAMIDE [Concomitant]
     Active Substance: LOPERAMIDE
     Indication: Diarrhoea
     Dosage: 1 DF EVERY 6 HOURS
     Route: 048
     Dates: start: 202204, end: 202204
  44. EMEND [Concomitant]
     Active Substance: APREPITANT
     Indication: Prophylaxis of nausea and vomiting
     Dosage: 125 MG, SINGLE
     Route: 048
     Dates: start: 20220414, end: 20220414
  45. EMEND [Concomitant]
     Active Substance: APREPITANT
     Dosage: 80 MG, 1X/DAY
     Route: 048
     Dates: start: 20220415, end: 20220416
  46. EMEND [Concomitant]
     Active Substance: APREPITANT
     Dosage: 125 MG, SINGLE
     Route: 048
     Dates: start: 20220428, end: 20220428
  47. CALCIUM PHOSPHATE, DIBASIC, ANHYDROUS\MAGNESIUM GLYCEROPHOSPHATE\PHOSP [Concomitant]
     Active Substance: CALCIUM PHOSPHATE, DIBASIC, ANHYDROUS\MAGNESIUM GLYCEROPHOSPHATE\PHOSPHORIC ACID\SODIUM PHOSPHATE, D
     Indication: Diarrhoea
     Dosage: 50
     Dates: start: 20220428, end: 20220504

REACTIONS (6)
  - Diarrhoea [Recovered/Resolved]
  - Decreased appetite [Recovered/Resolved]
  - Weight decreased [Unknown]
  - Pyrexia [Unknown]
  - Hypertension [Unknown]
  - Off label use [Unknown]

NARRATIVE: CASE EVENT DATE: 20220428
